FAERS Safety Report 9423156 (Version 2)
Quarter: 2013Q4

REPORT INFORMATION
  Report Type: Spontaneous
  Country: US (occurrence: US)
  Receive Date: 20130726
  Receipt Date: 20131023
  Transmission Date: 20140711
  Serious: Yes (Hospitalization)
  Sender: FDA-Public Use
  Company Number: US-BRISTOL-MYERS SQUIBB COMPANY-19136969

PATIENT
  Age: 34 Year
  Sex: Female
  Weight: 115.19 kg

DRUGS (8)
  1. ABILIFY MAINTENA INJECTION [Suspect]
     Indication: SCHIZOAFFECTIVE DISORDER
     Dosage: ABILIFY MAINTENA INJ?SECOND DOSE:02JUL2013
     Route: 030
     Dates: start: 20130606
  2. ABILIFY [Suspect]
     Indication: SCHIZOAFFECTIVE DISORDER
     Dosage: THERAPY DATES:21MAY2013-31MAY2013:15MG:HS?JUN2013-ONG:15MG?10 MG
     Route: 048
     Dates: start: 20130521, end: 20130531
  3. DOCUSATE [Concomitant]
  4. ADVAIR [Concomitant]
  5. WELLBUTRIN [Concomitant]
  6. KLONOPIN [Concomitant]
  7. PRENATAL VITAMINS [Concomitant]
  8. PEPCID [Concomitant]

REACTIONS (2)
  - Psychotic disorder [Recovered/Resolved]
  - Off label use [Unknown]
